FAERS Safety Report 23797517 (Version 3)
Quarter: 2025Q4

REPORT INFORMATION
  Report Type: Spontaneous
  Country: CA (occurrence: CA)
  Receive Date: 20240430
  Receipt Date: 20251111
  Transmission Date: 20260117
  Serious: Yes (Life-Threatening, Hospitalization, Other)
  Sender: RANBAXY
  Company Number: CA-SUN PHARMACEUTICAL INDUSTRIES LTD-2024R1-444502

PATIENT
  Age: 16 Year
  Sex: Female

DRUGS (1)
  1. HYDROXYCHLOROQUINE [Suspect]
     Active Substance: HYDROXYCHLOROQUINE
     Indication: Systemic lupus erythematosus
     Dosage: 78 GRAM (CUMULATIVE DOSE)
     Route: 065

REACTIONS (4)
  - Toxicity to various agents [Unknown]
  - Cardiotoxicity [Recovering/Resolving]
  - Cardiac failure [Recovering/Resolving]
  - Cardiogenic shock [Recovering/Resolving]
